FAERS Safety Report 10150312 (Version 1)
Quarter: 2014Q2

REPORT INFORMATION
  Report Type: Report from Study
  Country: US (occurrence: US)
  Receive Date: 20140502
  Receipt Date: 20140502
  Transmission Date: 20141212
  Serious: Yes (Other)
  Sender: FDA-Public Use
  Company Number: US-BRISTOL-MYERS SQUIBB COMPANY-20669586

PATIENT
  Age: 75 Year
  Sex: Male
  Weight: 74.83 kg

DRUGS (1)
  1. ELIQUIS [Suspect]

REACTIONS (2)
  - Dyspnoea [Unknown]
  - Liver disorder [Unknown]
